FAERS Safety Report 4762735-0 (Version None)
Quarter: 2005Q3

REPORT INFORMATION
  Report Type: 
  Country: None (occurrence: None)
  Receive Date: 20050907
  Receipt Date: 20050714
  Transmission Date: 20060218
  Serious: Yes (Other)
  Sender: FDA-Public Use
  Company Number: US-ROCHE-411026

PATIENT
  Age: 56 Year
  Sex: Female
  Weight: 70.8 kg

DRUGS (2)
  1. BONIVA [Suspect]
     Indication: OSTEOPOROSIS
     Dosage: FORM REPORTED AS PILLS. ONLY 1 PILL WAS TAKEN.
     Route: 048
     Dates: start: 20050708
  2. WINE [Interacting]
     Indication: DRUG USE FOR UNKNOWN INDICATION
     Route: 065
     Dates: start: 20050709

REACTIONS (4)
  - ALCOHOL INTERACTION [None]
  - DIZZINESS [None]
  - FEELING HOT [None]
  - VISUAL ACUITY REDUCED [None]
